FAERS Safety Report 6095141-X (Version None)
Quarter: 2009Q1

REPORT INFORMATION
  Report Type: 
  Country: None (occurrence: None)
  Receive Date: 20090227
  Receipt Date: 20080129
  Transmission Date: 20090719
  Serious: No
  Sender: FDA-Public Use
  Company Number: A0706090A

PATIENT
  Age: 30 Year
  Sex: Female

DRUGS (3)
  1. LAMICTAL [Suspect]
     Indication: BIPOLAR DISORDER
     Dosage: 100MG TWICE PER DAY
     Route: 048
     Dates: start: 20070101, end: 20080124
  2. VITAMINS [Concomitant]
  3. KLONOPIN [Concomitant]

REACTIONS (2)
  - RASH [None]
  - RASH MACULAR [None]
